FAERS Safety Report 21697778 (Version 1)
Quarter: 2022Q4

REPORT INFORMATION
  Report Type: Report from Study
  Country: US (occurrence: US)
  Receive Date: 20221208
  Receipt Date: 20221208
  Transmission Date: 20230112
  Serious: No
  Sender: FDA-Public Use
  Company Number: US-ABBVIE-4226690

PATIENT
  Sex: Female

DRUGS (1)
  1. IMBRUVICA [Suspect]
     Active Substance: IBRUTINIB
     Indication: Chronic lymphocytic leukaemia (in remission)
     Route: 048

REACTIONS (9)
  - Myocardial injury [Unknown]
  - Fall [Unknown]
  - Haemoglobin increased [Unknown]
  - Erythema [Unknown]
  - Periorbital swelling [Unknown]
  - Traumatic lung injury [Unknown]
  - White blood cell count abnormal [Unknown]
  - Blood sodium decreased [Unknown]
  - Pain [Recovered/Resolved]
